FAERS Safety Report 6038700-2 (Version None)
Quarter: 2009Q1

REPORT INFORMATION
  Report Type: 
  Country: None (occurrence: None)
  Receive Date: 20090115
  Receipt Date: 20081124
  Transmission Date: 20090719
  Serious: No
  Sender: FDA-Public Use
  Company Number: US-BAYER-200814619BCC

PATIENT
  Age: 82 Year
  Sex: Female

DRUGS (4)
  1. NAPROXEN [Suspect]
     Indication: DRUG USE FOR UNKNOWN INDICATION
  2. INDAPAMIDE [Suspect]
     Dates: start: 20081020
  3. AMILORIDE HYDROCHLORIDE [Suspect]
     Dates: start: 20081020
  4. IBUPROFEN [Suspect]
     Dates: start: 20081020

REACTIONS (3)
  - BLOOD CREATININE DECREASED [None]
  - GLOMERULAR FILTRATION RATE DECREASED [None]
  - URINARY TRACT INFECTION [None]
